FAERS Safety Report 5780355-6 (Version None)
Quarter: 2008Q2

REPORT INFORMATION
  Report Type: 
  Country: None (occurrence: None)
  Receive Date: 20080620
  Receipt Date: 20080611
  Transmission Date: 20081010
  Serious: Yes (Other)
  Sender: FDA-Public Use
  Company Number: B0524991A

PATIENT
  Age: 27 Year
  Sex: Male

DRUGS (1)
  1. PAROXETINE HCL [Suspect]
     Indication: DEPRESSION
     Dosage: 30MG PER DAY
     Route: 048
     Dates: start: 20070101

REACTIONS (8)
  - HYPERTHERMIA [None]
  - HYPOAESTHESIA [None]
  - MONOPARESIS [None]
  - MONOPLEGIA [None]
  - NEURALGIC AMYOTROPHY [None]
  - PAIN IN EXTREMITY [None]
  - RADICULAR SYNDROME [None]
  - VOMITING [None]
